FAERS Safety Report 10929584 (Version 3)
Quarter: 2015Q1

REPORT INFORMATION
  Report Type: Spontaneous
  Country: HR (occurrence: HR)
  Receive Date: 20150319
  Receipt Date: 20150326
  Transmission Date: 20150721
  Serious: Yes (Hospitalization)
  Sender: FDA-Public Use
  Company Number: HR-PFIZER INC-2015093812

PATIENT
  Age: 48 Year
  Sex: Female

DRUGS (4)
  1. FEVARIN [Concomitant]
     Active Substance: FLUVOXAMINE MALEATE
     Indication: GENERALISED ANXIETY DISORDER
     Dosage: 50 MG, 1X/DAY (IN THE EVENING)
     Dates: start: 2010
  2. HELEX [Suspect]
     Active Substance: ALPRAZOLAM
     Dosage: 5 MG, DAILY
  3. HELEX [Suspect]
     Active Substance: ALPRAZOLAM
     Indication: ANXIETY
     Dosage: 3 MG, DAILY
  4. HELEX [Suspect]
     Active Substance: ALPRAZOLAM
     Dosage: 3-4 MG, DAILY

REACTIONS (5)
  - Generalised anxiety disorder [Recovered/Resolved]
  - Asthma [Recovered/Resolved]
  - Condition aggravated [Recovered/Resolved]
  - Drug abuse [None]
  - Drug dependence [Unknown]

NARRATIVE: CASE EVENT DATE: 2010
